FAERS Safety Report 18325990 (Version 1)
Quarter: 2020Q3

REPORT INFORMATION
  Report Type: Spontaneous
  Country: FR (occurrence: FR)
  Receive Date: 20200929
  Receipt Date: 20200929
  Transmission Date: 20201103
  Serious: Yes (Other)
  Sender: FDA-Public Use
  Company Number: NVSC2020FR260742

PATIENT
  Age: 79 Year
  Sex: Female

DRUGS (1)
  1. REVOLADE [Suspect]
     Active Substance: ELTROMBOPAG
     Indication: IMMUNE THROMBOCYTOPENIA
     Dosage: 75 MG
     Route: 065
     Dates: start: 202006

REACTIONS (2)
  - Carotid artery thrombosis [Unknown]
  - Cerebrovascular accident [Unknown]
